FAERS Safety Report 6280472-0 (Version None)
Quarter: 2009Q3

REPORT INFORMATION
  Report Type: 
  Country: None (occurrence: None)
  Receive Date: 20090724
  Receipt Date: 20080707
  Transmission Date: 20100115
  Serious: No
  Sender: FDA-Public Use
  Company Number: A0736483A

PATIENT
  Age: 78 Year
  Sex: Male

DRUGS (1)
  1. AVANDIA [Suspect]
     Dosage: 4MG PER DAY
     Route: 048

REACTIONS (2)
  - JOINT SWELLING [None]
  - THERAPEUTIC RESPONSE DECREASED [None]
